FAERS Safety Report 9797187 (Version 1)
Quarter: 2014Q1

REPORT INFORMATION
  Report Type: Spontaneous
  Country: US (occurrence: US)
  Receive Date: 20140106
  Receipt Date: 20140106
  Transmission Date: 20141002
  Serious: Yes (Hospitalization, Other)
  Sender: FDA-Public Use
  Company Number: PHHY2013US152308

PATIENT
  Age: 13 Year
  Sex: Male

DRUGS (4)
  1. QUETIAPINE [Suspect]
     Dosage: 500 MG, QD
  2. QUETIAPINE [Suspect]
     Dosage: 100 MG, QD
  3. QUETIAPINE [Suspect]
     Dosage: 500 MG ON FOUR SEPARATE OCCASIONS IN THE PREVIOUS FORTY-EIGHT HOURS
     Route: 045
  4. VALPROIC ACID [Concomitant]
     Dosage: 500 MG, QHS

REACTIONS (14)
  - Musculoskeletal stiffness [Recovered/Resolved]
  - Drug abuse [Unknown]
  - Toxicity to various agents [Recovered/Resolved]
  - Tachypnoea [Recovered/Resolved]
  - Euphoric mood [Recovered/Resolved]
  - Muscle twitching [Recovered/Resolved]
  - Blepharospasm [Recovered/Resolved]
  - Mydriasis [Recovered/Resolved]
  - Restlessness [Recovered/Resolved]
  - Dyskinesia [Recovered/Resolved]
  - Tachycardia [Recovered/Resolved]
  - Akathisia [Recovered/Resolved]
  - Myoclonus [Recovered/Resolved]
  - Excessive eye blinking [Recovered/Resolved]
